FAERS Safety Report 8299760-1 (Version None)
Quarter: 2012Q2

REPORT INFORMATION
  Report Type: 
  Country: None (occurrence: None)
  Receive Date: 20120419
  Receipt Date: 20120411
  Transmission Date: 20120825
  Serious: Yes (Hospitalization)
  Sender: FDA-Public Use
  Company Number: FR-MERCK-1204FRA00076

PATIENT
  Age: 67 Year
  Sex: Male
  Weight: 96 kg

DRUGS (5)
  1. JANUVIA [Suspect]
     Indication: TYPE 2 DIABETES MELLITUS
     Route: 048
     Dates: start: 20100127, end: 20120130
  2. OLMESARTAN MEDOXOMIL [Concomitant]
     Route: 065
  3. URAPIDIL [Concomitant]
     Indication: HYPERTENSION
     Route: 065
  4. NAFRONYL OXALATE [Concomitant]
     Indication: ARTERITIS
     Route: 065
  5. METFORMIN HCL [Suspect]
     Indication: TYPE 2 DIABETES MELLITUS
     Route: 065
     Dates: start: 20100127

REACTIONS (1)
  - ERYSIPELAS [None]
